FAERS Safety Report 16453628 (Version 1)
Quarter: 2019Q2

REPORT INFORMATION
  Report Type: Spontaneous
  Country: CA (occurrence: CA)
  Receive Date: 20190619
  Receipt Date: 20190619
  Transmission Date: 20190711
  Serious: Yes (Hospitalization)
  Sender: FDA-Public Use
  Company Number: CA-ACTELION-A-US2019-191916

PATIENT
  Age: 55 Year
  Sex: Female

DRUGS (7)
  1. MACITENTAN [Concomitant]
     Active Substance: MACITENTAN
     Indication: SYSTEMIC SCLERODERMA
  2. TADALAFIL. [Concomitant]
     Active Substance: TADALAFIL
  3. BISOPROLOL [Concomitant]
     Active Substance: BISOPROLOL
  4. FUROSEMIDE. [Concomitant]
     Active Substance: FUROSEMIDE
  5. XARELTO [Concomitant]
     Active Substance: RIVAROXABAN
  6. SYNTHROID [Concomitant]
     Active Substance: LEVOTHYROXINE SODIUM
  7. CARIPUL [Suspect]
     Active Substance: EPOPROSTENOL
     Indication: PULMONARY ARTERIAL HYPERTENSION
     Dosage: 2000 NG
     Route: 042
     Dates: start: 20190522

REACTIONS (5)
  - Chest discomfort [Unknown]
  - Hospitalisation [Unknown]
  - Decreased appetite [Unknown]
  - Orthopnoea [Unknown]
  - Cough [Unknown]

NARRATIVE: CASE EVENT DATE: 20190604
